FAERS Safety Report 19896094 (Version 2)
Quarter: 2021Q4

REPORT INFORMATION
  Report Type: Spontaneous
  Country: GR (occurrence: GR)
  Receive Date: 20210929
  Receipt Date: 20211006
  Transmission Date: 20220303
  Serious: Yes (Life-Threatening, Other)
  Sender: FDA-Public Use
  Company Number: GR-SA-2021SA145855

PATIENT
  Sex: Female
  Weight: 68 kg

DRUGS (3)
  1. TOPIRAMATE [Suspect]
     Active Substance: TOPIRAMATE
     Indication: Epilepsy
     Dosage: UNK
     Route: 048
     Dates: start: 20141120, end: 201502
  2. ZOLPIDEM TARTRATE [Suspect]
     Active Substance: ZOLPIDEM TARTRATE
     Indication: Epilepsy
     Dosage: UNK
     Route: 065
  3. VALPROATE SODIUM [Suspect]
     Active Substance: VALPROATE SODIUM
     Indication: Product used for unknown indication
     Dosage: 500 MG
     Route: 065

REACTIONS (9)
  - Blindness transient [Recovered/Resolved]
  - Fall [Unknown]
  - Gait disturbance [Unknown]
  - Product availability issue [Unknown]
  - Off label use [Unknown]
  - Product use issue [Unknown]
  - Balance disorder [Unknown]
  - Intentional product misuse [Unknown]
  - Drug effective for unapproved indication [Unknown]
